FAERS Safety Report 8529511-4 (Version None)
Quarter: 2012Q3

REPORT INFORMATION
  Report Type: 
  Country: None (occurrence: None)
  Receive Date: 20120723
  Receipt Date: 20120713
  Transmission Date: 20120928
  Serious: Yes (Life-Threatening, Hospitalization, Other)
  Sender: FDA-Public Use
  Company Number: CA-JNJFOC-20120707474

PATIENT
  Age: 69 Year
  Sex: Female
  Weight: 111.13 kg

DRUGS (7)
  1. REMICADE [Suspect]
     Indication: RHEUMATOID ARTHRITIS
     Route: 042
     Dates: end: 20090909
  2. OXYCET [Concomitant]
     Indication: PAIN
     Route: 048
     Dates: end: 20120101
  3. SERTRALINE HYDROCHLORIDE [Concomitant]
     Indication: DEPRESSION
     Route: 048
     Dates: end: 20120101
  4. TRAZODONE HYDROCHLORIDE [Concomitant]
     Indication: SLEEP DISORDER
     Route: 048
     Dates: end: 20120101
  5. VITAMIN B-12 [Concomitant]
     Indication: VITAMIN B12 DEFICIENCY
     Route: 030
  6. VITAMIN B-12 [Concomitant]
     Indication: FATIGUE
     Route: 030
  7. REMICADE [Suspect]
     Route: 042
     Dates: start: 20060821

REACTIONS (3)
  - LYMPHOMA [None]
  - LUNG NEOPLASM MALIGNANT [None]
  - URTICARIA [None]
